FAERS Safety Report 20940532 (Version 2)
Quarter: 2022Q2

REPORT INFORMATION
  Report Type: Spontaneous
  Country: DE (occurrence: DE)
  Receive Date: 20220609
  Receipt Date: 20220623
  Transmission Date: 20220721
  Serious: Yes (Hospitalization)
  Sender: FDA-Public Use
  Company Number: DE-TEVA-2022-DE-2043401

PATIENT
  Age: 7 Year
  Sex: Male

DRUGS (4)
  1. METHOTREXATE [Suspect]
     Active Substance: METHOTREXATE
     Indication: Acute lymphocytic leukaemia
     Dosage: REINDUCTION (PROTOCOL IIB) USING THE AIEOP-BFM ALL 2009 PROTOCOL
     Route: 037
     Dates: start: 2017
  2. THIOGUANINE [Suspect]
     Active Substance: THIOGUANINE
     Indication: Acute lymphocytic leukaemia
     Dosage: REINDUCTION (PROTOCOL IIB) USING THE AIEOP-BFM ALL 2009 PROTOCOL
     Route: 048
     Dates: start: 2017, end: 2017
  3. CYCLOPHOSPHAMIDE [Concomitant]
     Active Substance: CYCLOPHOSPHAMIDE
     Indication: Acute lymphocytic leukaemia
     Dosage: REINDUCTION (PROTOCOL IIB) USING THE AIEOP-BFM ALL 2009 PROTOCOL
     Route: 042
     Dates: start: 2017
  4. CYTARABINE [Concomitant]
     Active Substance: CYTARABINE
     Indication: Acute lymphocytic leukaemia
     Dosage: REINDUCTION (PROTOCOL IIB) USING THE AIEOP-BFM ALL 2009 PROTOCOL
     Route: 042
     Dates: start: 2017

REACTIONS (3)
  - Leukoencephalopathy [Unknown]
  - Venoocclusive liver disease [Recovered/Resolved]
  - Venoocclusive disease [Recovered/Resolved]

NARRATIVE: CASE EVENT DATE: 20170101
